FAERS Safety Report 23347624 (Version 1)
Quarter: 2023Q4

REPORT INFORMATION
  Report Type: Spontaneous
  Country: US (occurrence: US)
  Receive Date: 20231228
  Receipt Date: 20231228
  Transmission Date: 20240110
  Serious: Yes (Hospitalization, Other)
  Sender: FDA-Public Use
  Company Number: US-BRISTOL-MYERS SQUIBB COMPANY-2023-188322

PATIENT
  Age: 40 Year
  Sex: Male

DRUGS (5)
  1. NIVOLUMAB [Suspect]
     Active Substance: NIVOLUMAB
     Indication: Renal cell carcinoma
     Dates: end: 20230821
  2. CABOMETYX [Suspect]
     Active Substance: CABOZANTINIB S-MALATE
     Indication: Renal cell carcinoma
     Route: 048
     Dates: start: 20230531, end: 20230821
  3. APIXABAN [Concomitant]
     Active Substance: APIXABAN
     Indication: Product used for unknown indication
  4. OXYCODONE [Concomitant]
     Active Substance: OXYCODONE
     Indication: Product used for unknown indication
     Dosage: UNK
  5. ONDANSETRON [Concomitant]
     Active Substance: ONDANSETRON
     Indication: Product used for unknown indication
     Dosage: UNK

REACTIONS (11)
  - Cancer pain [Unknown]
  - Hypercalcaemia [Unknown]
  - Restlessness [Unknown]
  - Delirium [Unknown]
  - Acute kidney injury [Unknown]
  - Brachiocephalic vein thrombosis [Unknown]
  - Soft tissue mass [Unknown]
  - Insomnia [Unknown]
  - Adrenal mass [Unknown]
  - Jugular vein thrombosis [Unknown]
  - Hypotension [Unknown]

NARRATIVE: CASE EVENT DATE: 20230718
